FAERS Safety Report 7287755-6 (Version None)
Quarter: 2011Q1

REPORT INFORMATION
  Report Type: 
  Country: None (occurrence: None)
  Receive Date: 20110211
  Receipt Date: 20110131
  Transmission Date: 20110831
  Serious: Yes (Hospitalization)
  Sender: FDA-Public Use
  Company Number: PE-SANOFI-AVENTIS-2011SA007514

PATIENT
  Age: 34 Year
  Sex: Female

DRUGS (1)
  1. MULTAQ [Suspect]
     Indication: ARRHYTHMIA
     Route: 048
     Dates: start: 20110119, end: 20110123

REACTIONS (6)
  - CHEST PAIN [None]
  - DYSPNOEA [None]
  - UNDERDOSE [None]
  - ARRHYTHMIA [None]
  - PALPITATIONS [None]
  - RESPIRATORY FAILURE [None]
